FAERS Safety Report 4544871-7 (Version None)
Quarter: 2005Q1

REPORT INFORMATION
  Report Type: 
  Country: None (occurrence: None)
  Receive Date: 20050104
  Receipt Date: 20041228
  Transmission Date: 20050727
  Serious: Yes (Life-Threatening, Hospitalization)
  Sender: FDA-Public Use
  Company Number: ES-2004-037199

PATIENT
  Age: 75 Year
  Sex: Male

DRUGS (1)
  1. ULTRAVIST / CLAROGRAF 240 (IOPROMIDE) INFUSION [Suspect]
     Indication: X-RAY
     Dates: start: 20041101, end: 20041101

REACTIONS (1)
  - ANAPHYLACTIC SHOCK [None]
